FAERS Safety Report 9241397 (Version 1)
Quarter: 2013Q1

REPORT INFORMATION
  Report Type: Spontaneous
  Country: US (occurrence: None)
  Receive Date: 20121120
  Receipt Date: 20121120
  Transmission Date: 20140127
  Serious: No
  Sender: FDA-Public Use
  Company Number: 1000038099

PATIENT
  Age: 65 Year
  Sex: Female

DRUGS (4)
  1. VIIBRYD [Suspect]
     Indication: DEPRESSION
     Dosage: 10MG, (10MG, 1 IN 1 D)
     Route: 048
     Dates: start: 201207, end: 2012
  2. SYNTHROID (LEVOTHYROXINE SODIUM) [Concomitant]
  3. CYTOMEL (LIOTHYRONINE SODIUM) [Concomitant]
  4. BYSTOLIC (NEBIVOLOL HYDROCHLORIDE) [Concomitant]

REACTIONS (5)
  - Vertigo [None]
  - Dizziness [None]
  - Crying [None]
  - Herpes zoster [None]
  - Fatigue [None]
